FAERS Safety Report 9290307 (Version 2)
Quarter: 2013Q2

REPORT INFORMATION
  Report Type: Spontaneous
  Country: US (occurrence: US)
  Receive Date: 20130515
  Receipt Date: 20130609
  Transmission Date: 20140414
  Serious: No
  Sender: FDA-Public Use
  Company Number: US-TEVA-405110USA

PATIENT
  Age: 78 Year
  Sex: Male
  Weight: 105.33 kg

DRUGS (20)
  1. NUVIGIL [Suspect]
     Indication: SOMNOLENCE
     Dosage: 150 MILLIGRAM DAILY;
     Route: 048
     Dates: start: 20130511
  2. NUVIGIL [Suspect]
     Indication: SLEEP APNOEA SYNDROME
  3. NUVIGIL [Suspect]
     Indication: FATIGUE
  4. FISH OIL [Concomitant]
     Indication: MEDICAL DIET
     Dosage: 1200 IU (INTERNATIONAL UNIT) DAILY;
     Route: 048
  5. ALTACE [Concomitant]
     Indication: HYPERTENSION
     Dosage: 2.5 MILLIGRAM DAILY;
     Route: 048
  6. CARTIA [Concomitant]
     Indication: HYPERTENSION
     Dosage: 40 MILLIGRAM DAILY;
     Route: 048
  7. VITAMIN B12 NOS [Concomitant]
     Indication: NUTRITIONAL SUPPLEMENTATION
  8. CALCIUM W/VITAMIN D NOS [Concomitant]
     Indication: NUTRITIONAL SUPPLEMENTATION
     Route: 048
  9. GLUCOSAMINE [Concomitant]
     Indication: NUTRITIONAL SUPPLEMENTATION
     Dosage: 750 MILLIGRAM DAILY;
     Route: 048
  10. MSM [Concomitant]
     Indication: NUTRITIONAL SUPPLEMENTATION
     Dosage: 850 MILLIGRAM DAILY;
     Route: 048
  11. CENTRUM [Concomitant]
     Indication: NUTRITIONAL SUPPLEMENTATION
     Route: 048
  12. NEXIUM [Concomitant]
     Indication: GASTROOESOPHAGEAL REFLUX DISEASE
     Dosage: 40 MILLIGRAM DAILY;
     Route: 048
  13. FOLIC ACID [Concomitant]
     Indication: NUTRITIONAL SUPPLEMENTATION
     Dosage: 800 MILLIGRAM DAILY;
     Route: 048
  14. IRON [Concomitant]
     Indication: NUTRITIONAL SUPPLEMENTATION
     Dosage: 28 MILLIGRAM DAILY;
     Route: 048
  15. STOOL SOFTENER [Concomitant]
  16. SIMVASTATIN [Concomitant]
     Indication: BLOOD CHOLESTEROL
     Dosage: 20 MILLIGRAM DAILY;
     Route: 048
  17. TEMAZEPAM [Concomitant]
     Indication: INSOMNIA
     Dosage: 15 MILLIGRAM DAILY;
     Route: 048
  18. WARFARIN [Concomitant]
     Indication: ATRIAL FIBRILLATION
     Dosage: 5 MILLIGRAM DAILY; PLUS 2.5 MG T, TH, SAT
     Route: 048
  19. NIACIN [Concomitant]
     Indication: VITAMIN SUPPLEMENTATION
     Dosage: 50 MILLIGRAM DAILY;
     Route: 048
  20. TYLENOL ARTHRITIS [Concomitant]
     Dosage: 2 TABLET DAILY;
     Route: 048

REACTIONS (1)
  - Bruxism [Recovering/Resolving]
